FAERS Safety Report 14540854 (Version 1)
Quarter: 2018Q1

REPORT INFORMATION
  Report Type: Spontaneous
  Country: FR (occurrence: FR)
  Receive Date: 20180216
  Receipt Date: 20180216
  Transmission Date: 20180509
  Serious: Yes (Hospitalization, Disabling, Other)
  Sender: FDA-Public Use
  Company Number: FR-OTSUKA-DJ20060602

PATIENT

DRUGS (2)
  1. ABILIFY [Suspect]
     Active Substance: ARIPIPRAZOLE
     Route: 048
  2. LYSANXIA [Concomitant]
     Active Substance: PRAZEPAM
     Route: 065

REACTIONS (8)
  - Pallor [Recovered/Resolved]
  - Dysarthria [Recovered/Resolved]
  - Joint stiffness [Recovered/Resolved]
  - Salivary hypersecretion [Recovered/Resolved]
  - Hypertonia [Recovered/Resolved]
  - Eye movement disorder [Recovered/Resolved]
  - Extrapyramidal disorder [Recovered/Resolved]
  - Tremor [Recovered/Resolved]

NARRATIVE: CASE EVENT DATE: 20050806
